FAERS Safety Report 4811559-4 (Version None)
Quarter: 2005Q4

REPORT INFORMATION
  Report Type: 
  Country: None (occurrence: None)
  Receive Date: 20051025
  Receipt Date: 20051013
  Transmission Date: 20060501
  Serious: Yes (Death)
  Sender: FDA-Public Use
  Company Number: 2005142207

PATIENT
  Age: 80 Year
  Sex: Female

DRUGS (3)
  1. GEODON [Suspect]
     Indication: BIPOLAR DISORDER
     Dosage: SEE IMAGE
     Route: 030
     Dates: start: 20051001, end: 20051002
  2. GEODON [Suspect]
     Indication: BIPOLAR DISORDER
     Dosage: SEE IMAGE
     Route: 030
     Dates: start: 20051003, end: 20051011
  3. ANTIBIOTICS (ANTIBIOTICS) [Concomitant]

REACTIONS (2)
  - DRUG INEFFECTIVE [None]
  - RESPIRATORY FAILURE [None]
